FAERS Safety Report 6437273-X (Version None)
Quarter: 2009Q4

REPORT INFORMATION
  Report Type: 
  Country: None (occurrence: None)
  Receive Date: 20091112
  Receipt Date: 20091103
  Transmission Date: 20100525
  Serious: Yes (Death)
  Sender: FDA-Public Use
  Company Number: ES-ROCHE-666883

PATIENT
  Age: 53 Year
  Sex: Female

DRUGS (8)
  1. XELODA [Suspect]
     Indication: RECTOSIGMOID CANCER STAGE III
     Route: 048
     Dates: start: 20090831, end: 20090904
  2. METFORMIN HCL [Concomitant]
     Route: 048
     Dates: start: 20000101, end: 20090911
  3. AMLODIPINE [Concomitant]
     Route: 048
     Dates: start: 20030101, end: 20090911
  4. SERTRALINE HCL [Concomitant]
     Indication: DEPRESSION
     Route: 048
     Dates: start: 20070101, end: 20090911
  5. CARDURA [Concomitant]
     Route: 048
     Dates: start: 20050101, end: 20090911
  6. FERROUS GLYCINE SULPHATE [Concomitant]
     Indication: RECTOSIGMOID CANCER STAGE III
     Dosage: DRUG NAME: FERROSANOL
     Route: 048
     Dates: start: 20090607, end: 20090911
  7. CLORAZEPATE DIPOTASSIUM [Concomitant]
     Indication: ANXIETY
     Dosage: DRUG NAME: TRANSILIUM
     Route: 048
     Dates: start: 20070101, end: 20090911
  8. ZARATOR [Concomitant]
     Route: 048
     Dates: start: 20050101, end: 20090911

REACTIONS (11)
  - ACUTE PULMONARY OEDEMA [None]
  - ANURIA [None]
  - COAGULOPATHY [None]
  - DIARRHOEA [None]
  - ELECTROLYTE IMBALANCE [None]
  - FEBRILE BONE MARROW APLASIA [None]
  - HEPATIC FAILURE [None]
  - HYPERGLYCAEMIA [None]
  - MULTI-ORGAN FAILURE [None]
  - PROCTITIS [None]
  - SEPTIC SHOCK [None]
